FAERS Safety Report 7927248-3 (Version None)
Quarter: 2011Q4

REPORT INFORMATION
  Report Type: 
  Country: None (occurrence: None)
  Receive Date: 20111116
  Receipt Date: 20111103
  Transmission Date: 20120403
  Serious: Yes (Hospitalization)
  Sender: FDA-Public Use
  Company Number: 11-690

PATIENT
  Age: 72 Year
  Sex: Female

DRUGS (6)
  1. IBUPROFEN [Suspect]
     Indication: ANALGESIC INTERVENTION SUPPORTIVE THERAPY
     Dosage: 400MG;TID;ORAL
     Route: 048
     Dates: start: 20111008, end: 20111012
  2. BECLOMETHASONE DIPROPIONATE [Concomitant]
  3. CALCIUM CARBONATE [Concomitant]
  4. ALENDRONATE SODIUM [Concomitant]
  5. XARELTO [Suspect]
     Indication: THROMBOSIS PROPHYLAXIS
     Dosage: 10MG;QD;ORAL
     Route: 048
     Dates: start: 20111008, end: 20111012
  6. ALBUTEROL SULFATE AUTOHALER [Concomitant]

REACTIONS (2)
  - MELAENA [None]
  - DUODENAL ULCER HAEMORRHAGE [None]
